FAERS Safety Report 7561055-9 (Version None)
Quarter: 2011Q2

REPORT INFORMATION
  Report Type: 
  Country: None (occurrence: None)
  Receive Date: 20110621
  Receipt Date: 20110611
  Transmission Date: 20111010
  Serious: Yes (Other)
  Sender: FDA-Public Use
  Company Number: DE-UCBSA-035388

PATIENT
  Age: 33 Year
  Sex: Male
  Weight: 72 kg

DRUGS (6)
  1. DIAZEPAM [Suspect]
     Dosage: TOTAL AMOUNT: 20MG
     Route: 048
  2. KEPPRA [Suspect]
     Dosage: TOTAL AMOUNT: 750MG
     Route: 048
  3. PAROXETINE HCL [Suspect]
     Dosage: TOTAL AMOUNT: 40MG
     Route: 048
  4. GBL DRUGS [Suspect]
     Dosage: 50 ML
     Route: 048
  5. CLONAZEPAM [Suspect]
     Dosage: TOTAL AMOUNT: 10MG
     Route: 048
  6. DOXEPIN [Suspect]
     Dosage: TOTAL AMOUNT: 100MG
     Route: 048

REACTIONS (2)
  - AGGRESSION [None]
  - DRUG ABUSE [None]
